FAERS Safety Report 21867133 (Version 2)
Quarter: 2023Q1

REPORT INFORMATION
  Report Type: Report from Study
  Country: US (occurrence: US)
  Receive Date: 20230116
  Receipt Date: 20230213
  Transmission Date: 20230418
  Serious: Yes (Hospitalization)
  Sender: FDA-Public Use
  Company Number: US-BTGSP-US-BTGSP-23-0002

PATIENT
  Age: 76 Year
  Sex: Male
  Weight: 95.8 kg

DRUGS (10)
  1. VORAXAZE [Suspect]
     Active Substance: GLUCARPIDASE
     Indication: Toxicity to various agents
     Dosage: 1 VIAL
     Route: 065
     Dates: start: 20221020, end: 20221020
  2. VORAXAZE [Suspect]
     Active Substance: GLUCARPIDASE
     Dosage: 1 VIAL
     Route: 065
     Dates: start: 20221101, end: 20221101
  3. VORAXAZE [Suspect]
     Active Substance: GLUCARPIDASE
     Dosage: 1 VIAL
     Route: 065
     Dates: start: 20221116, end: 20221116
  4. VORAXAZE [Suspect]
     Active Substance: GLUCARPIDASE
     Dosage: 1 VIAL
     Route: 065
     Dates: start: 20221206, end: 20221206
  5. VORAXAZE [Suspect]
     Active Substance: GLUCARPIDASE
     Dosage: 1 VIAL
     Route: 065
     Dates: start: 20221220, end: 20221220
  6. VORAXAZE [Suspect]
     Active Substance: GLUCARPIDASE
     Dosage: 1 VIAL
     Route: 065
     Dates: start: 20230110, end: 20230110
  7. METHOTREXATE [Suspect]
     Active Substance: METHOTREXATE
     Indication: Central nervous system lymphoma
     Dosage: 3.5 MILLIGRAM/SQ. METER
     Route: 065
     Dates: start: 20221219, end: 20221219
  8. RITUXIMAB [Suspect]
     Active Substance: RITUXIMAB
     Indication: Central nervous system lymphoma
     Dosage: 560 MILLIGRAM, QD
     Route: 065
     Dates: start: 20221216, end: 20221216
  9. IBRUTINIB [Suspect]
     Active Substance: IBRUTINIB
     Indication: Central nervous system lymphoma
     Dosage: 560 MILLIGRAM, QD
     Route: 065
     Dates: start: 20220927, end: 20230104
  10. LEUCOVORIN [Concomitant]
     Active Substance: LEUCOVORIN
     Indication: Toxicity to various agents
     Dosage: A TOTAL OF 6 DOSES, TAKEN EVERY 6 HOURS
     Dates: start: 20221220, end: 20221221

REACTIONS (3)
  - Atrial fibrillation [Recovered/Resolved]
  - Pericardial effusion [Recovered/Resolved]
  - Pleural effusion [Recovered/Resolved]

NARRATIVE: CASE EVENT DATE: 20230104
